FAERS Safety Report 21950235 (Version 5)
Quarter: 2024Q1

REPORT INFORMATION
  Report Type: Spontaneous
  Country: US (occurrence: US)
  Receive Date: 20230203
  Receipt Date: 20240312
  Transmission Date: 20240410
  Serious: No
  Sender: FDA-Public Use
  Company Number: US-PFIZER INC-PV202300020925

PATIENT
  Age: 78 Year
  Sex: Male

DRUGS (2)
  1. TIKOSYN [Suspect]
     Active Substance: DOFETILIDE
     Dosage: UNK
  2. TIKOSYN [Suspect]
     Active Substance: DOFETILIDE
     Dosage: TAKE 1 CAPSULE (250 MCG TOTAL) BY MOUTH 2 TIMES DAILY
     Route: 048
     Dates: start: 20231205

REACTIONS (3)
  - Back disorder [Unknown]
  - Musculoskeletal discomfort [Unknown]
  - Product dispensing error [Unknown]
